FAERS Safety Report 4372736-2 (Version None)
Quarter: 2004Q2

REPORT INFORMATION
  Report Type: 
  Country: None (occurrence: None)
  Receive Date: 20040602
  Receipt Date: 20040415
  Transmission Date: 20050107
  Serious: No
  Sender: FDA-Public Use
  Company Number: 200417634BWH

PATIENT
  Age: 70 Year
  Sex: Male

DRUGS (1)
  1. LEVITRA [Suspect]
     Dosage: 10 MG, ONCE, ORAL
     Route: 048
     Dates: start: 20040414

REACTIONS (1)
  - ERECTILE DYSFUNCTION [None]
